FAERS Safety Report 13527277 (Version 3)
Quarter: 2017Q2

REPORT INFORMATION
  Report Type: Spontaneous
  Country: DE (occurrence: DE)
  Receive Date: 20170509
  Receipt Date: 20170607
  Transmission Date: 20170830
  Serious: Yes (Other)
  Sender: FDA-Public Use
  Company Number: DE-AMGEN-DEUSP2017064550

PATIENT
  Age: 52 Year
  Sex: Female
  Weight: 67.8 kg

DRUGS (3)
  1. NPLATE [Suspect]
     Active Substance: ROMIPLOSTIM
     Indication: IMMUNE THROMBOCYTOPENIC PURPURA
     Dosage: 210 MUG, QWK
     Route: 042
     Dates: start: 20130719, end: 20170425
  2. DEXA [Concomitant]
     Active Substance: DEXAMETHASONE
     Dosage: 40 MG, UNK
  3. NPLATE [Suspect]
     Active Substance: ROMIPLOSTIM
     Dosage: 250 MUG, QWK
     Route: 042
     Dates: start: 20170302, end: 20170425

REACTIONS (2)
  - Platelet count decreased [Unknown]
  - Drug effect decreased [Not Recovered/Not Resolved]

NARRATIVE: CASE EVENT DATE: 20170116
